FAERS Safety Report 6299651-1 (Version None)
Quarter: 2009Q3

REPORT INFORMATION
  Report Type: 
  Country: None (occurrence: None)
  Receive Date: 20090806
  Receipt Date: 20090727
  Transmission Date: 20100115
  Serious: Yes (Other)
  Sender: FDA-Public Use
  Company Number: ES-SANOFI-SYNTHELABO-A01200907800

PATIENT
  Age: 70 Year
  Sex: Male

DRUGS (3)
  1. IRINOTECAN HCL [Suspect]
     Dosage: UNK
  2. FLUOROURACIL [Suspect]
     Dosage: UNK
  3. OXALIPLATIN [Suspect]
     Dosage: UNK

REACTIONS (1)
  - METASTATIC MALIGNANT MELANOMA [None]
